FAERS Safety Report 17796346 (Version 1)
Quarter: 2020Q2

REPORT INFORMATION
  Report Type: Spontaneous
  Country: US (occurrence: US)
  Receive Date: 20200517
  Receipt Date: 20200517
  Transmission Date: 20200714
  Serious: Yes (Death, Life-Threatening, Hospitalization, Other)
  Sender: FDA-Public Use
  Company Number: US-ACCORD-181744

PATIENT
  Age: 21 Year
  Sex: Male

DRUGS (4)
  1. TACROLIMUS. [Suspect]
     Active Substance: TACROLIMUS
     Indication: IMMUNOSUPPRESSANT DRUG THERAPY
     Dosage: TACROLIMUS WITH DECREASED THERAPEUTIC GOALS
  2. TACROLIMUS. [Suspect]
     Active Substance: TACROLIMUS
     Indication: IMMUNOSUPPRESSANT DRUG THERAPY
  3. ATENOLOL/ATENOLOL HYDROCHLORIDE [Concomitant]
     Active Substance: ATENOLOL HYDROCHLORIDE
  4. AMLODIPINE [Concomitant]
     Active Substance: AMLODIPINE BESYLATE

REACTIONS (8)
  - Respiratory failure [Fatal]
  - Cardiac arrest [Fatal]
  - Hepatic lesion [Fatal]
  - Pleural effusion [Fatal]
  - Adenocarcinoma of colon [Fatal]
  - Lymphadenopathy [Fatal]
  - Metastases to abdominal cavity [Fatal]
  - Intestinal obstruction [Fatal]
